FAERS Safety Report 21125326 (Version 4)
Quarter: 2022Q4

REPORT INFORMATION
  Report Type: Report from Study
  Country: US (occurrence: US)
  Receive Date: 20220725
  Receipt Date: 20221012
  Transmission Date: 20230112
  Serious: Yes (Other)
  Sender: FDA-Public Use
  Company Number: US-ABBVIE-22K-163-4470049-00

PATIENT
  Sex: Female

DRUGS (7)
  1. HUMIRA [Suspect]
     Active Substance: ADALIMUMAB
     Indication: Colitis ulcerative
     Dosage: CITRATE FREE?DAY 15
     Route: 058
  2. HUMIRA [Suspect]
     Active Substance: ADALIMUMAB
     Dosage: CITRATE FREE
     Route: 058
  3. HUMIRA [Suspect]
     Active Substance: ADALIMUMAB
     Dosage: DAY 1?CITRATE FREE
     Route: 058
  4. MODERNA COVID-19 VACCINE [Suspect]
     Active Substance: ELASOMERAN
     Indication: COVID-19 immunisation
     Dosage: 1ST DOSE
     Route: 030
     Dates: start: 20210409, end: 20210409
  5. MODERNA COVID-19 VACCINE [Suspect]
     Active Substance: ELASOMERAN
     Indication: COVID-19 immunisation
     Dosage: 2ND DOSE
     Route: 030
     Dates: start: 20210507, end: 20210507
  6. CREON [Suspect]
     Active Substance: PANCRELIPASE AMYLASE\PANCRELIPASE LIPASE\PANCRELIPASE PROTEASE
     Indication: Product used for unknown indication
     Route: 048
  7. HUMIRA [Suspect]
     Active Substance: ADALIMUMAB

REACTIONS (24)
  - Loss of consciousness [Unknown]
  - Anaemia [Unknown]
  - Bone contusion [Recovering/Resolving]
  - Blood pressure abnormal [Not Recovered/Not Resolved]
  - Haematochezia [Recovering/Resolving]
  - Cataract [Unknown]
  - Feeling abnormal [Unknown]
  - Urinary tract disorder [Recovered/Resolved]
  - Hypoacusis [Unknown]
  - Cerebral disorder [Recovered/Resolved]
  - Disorientation [Recovered/Resolved]
  - Haematochezia [Recovered/Resolved]
  - Skin laceration [Unknown]
  - Dyspepsia [Not Recovered/Not Resolved]
  - Fall [Unknown]
  - Ligament sprain [Unknown]
  - Pain in extremity [Recovered/Resolved]
  - Muscle spasms [Unknown]
  - Constipation [Unknown]
  - Constipation [Recovered/Resolved]
  - Vomiting [Unknown]
  - Visual impairment [Unknown]
  - Cataract [Recovering/Resolving]
  - Memory impairment [Unknown]

NARRATIVE: CASE EVENT DATE: 20210101
